FAERS Safety Report 21155455 (Version 1)
Quarter: 2022Q3

REPORT INFORMATION
  Report Type: Spontaneous
  Country: US (occurrence: US)
  Receive Date: 20220801
  Receipt Date: 20220801
  Transmission Date: 20221026
  Serious: Yes (Other)
  Sender: FDA-Public Use
  Company Number: US-REGENERON PHARMACEUTICALS, INC.-2022-100369

PATIENT
  Sex: Female

DRUGS (1)
  1. EYLEA [Suspect]
     Active Substance: AFLIBERCEPT
     Indication: Diabetic retinopathy
     Dosage: 2 MG BILATERALLY
     Dates: start: 20200903, end: 20200923

REACTIONS (3)
  - Diabetes mellitus [Unknown]
  - Eye haemorrhage [Unknown]
  - Eye oedema [Unknown]

NARRATIVE: CASE EVENT DATE: 20220701
